FAERS Safety Report 5341189-X (Version None)
Quarter: 2007Q2

REPORT INFORMATION
  Report Type: 
  Country: None (occurrence: None)
  Receive Date: 20070405
  Receipt Date: 20070111
  Transmission Date: 20071010
  Serious: No
  Sender: FDA-Public Use
  Company Number: US200701003132

PATIENT
  Sex: Male

DRUGS (2)
  1. CYMBALTA [Suspect]
     Dosage: 120 MG, ORAL
     Route: 048
     Dates: start: 20061001, end: 20061001
  2. PROZAC [Concomitant]

REACTIONS (2)
  - ANOREXIA [None]
  - EATING DISORDER [None]
